FAERS Safety Report 14093462 (Version 2)
Quarter: 2017Q4

REPORT INFORMATION
  Report Type: Spontaneous
  Country: US (occurrence: US)
  Receive Date: 20171016
  Receipt Date: 20171020
  Transmission Date: 20180321
  Serious: Yes (Hospitalization, Other)
  Sender: FDA-Public Use
  Company Number: US-ASTRAZENECA-2017SF04510

PATIENT
  Age: 646 Month
  Sex: Male
  Weight: 97.5 kg

DRUGS (7)
  1. MORPHINE [Concomitant]
     Active Substance: MORPHINE
     Indication: ARTHRALGIA
     Route: 048
     Dates: start: 20170401
  2. BABY ASPIRIN [Concomitant]
     Active Substance: ASPIRIN
  3. BRILINTA [Suspect]
     Active Substance: TICAGRELOR
     Indication: STENT PLACEMENT
     Route: 048
     Dates: start: 20170901
  4. ROSUVASTATIN. [Suspect]
     Active Substance: ROSUVASTATIN
     Indication: BLOOD CHOLESTEROL ABNORMAL
     Route: 048
  5. XARELTO [Concomitant]
     Active Substance: RIVAROXABAN
     Indication: ATRIAL FIBRILLATION
     Route: 048
     Dates: start: 20170901
  6. LISINOPRIL. [Suspect]
     Active Substance: LISINOPRIL
     Indication: BLOOD PRESSURE ABNORMAL
     Route: 048
     Dates: start: 1989
  7. ALLOPURINOL. [Concomitant]
     Active Substance: ALLOPURINOL
     Indication: GOUT
     Route: 048
     Dates: start: 2015

REACTIONS (21)
  - Blood cholesterol abnormal [Unknown]
  - Coronary artery disease [Unknown]
  - Myocardial infarction [Unknown]
  - Dyspnoea [Unknown]
  - Blood pressure abnormal [Unknown]
  - Atrial fibrillation [Unknown]
  - Scab [Unknown]
  - Gait disturbance [Unknown]
  - Nosocomial infection [Unknown]
  - Chest pain [Unknown]
  - Arthritis bacterial [Unknown]
  - Vascular stenosis [Unknown]
  - Panic attack [Unknown]
  - Heart rate decreased [Unknown]
  - Gout [Unknown]
  - Arthralgia [Unknown]
  - Bladder cancer [Recovered/Resolved]
  - Gingival bleeding [Recovered/Resolved]
  - Anxiety [Unknown]
  - Pathogen resistance [Unknown]
  - Off label use [Unknown]

NARRATIVE: CASE EVENT DATE: 200105
